FAERS Safety Report 5390501-4 (Version None)
Quarter: 2007Q3

REPORT INFORMATION
  Report Type: 
  Country: None (occurrence: None)
  Receive Date: 20070718
  Receipt Date: 20070403
  Transmission Date: 20080115
  Serious: No
  Sender: FDA-Public Use
  Company Number: US-KINGPHARMUSA00001-K200700411

PATIENT

DRUGS (6)
  1. LEVOXYL [Suspect]
     Indication: HYPOTHYROIDISM
     Route: 048
     Dates: start: 19980101
  2. LEVOXYL [Suspect]
     Dosage: 100 MCG, QD
     Route: 048
  3. IRON [Suspect]
     Indication: MINERAL SUPPLEMENTATION
     Dosage: UNK, QD
     Route: 048
  4. MULTIVITAMIN /00831701/ [Suspect]
     Indication: VITAMIN SUPPLEMENTATION
     Dosage: UNK, QD
  5. BLOOD PRESSURE PILL [Concomitant]
     Indication: HYPERTENSION
     Route: 048
  6. INHALER [Concomitant]
     Indication: ASTHMA
     Route: 048

REACTIONS (7)
  - ASTHENIA [None]
  - CHEST PAIN [None]
  - DRUG INEFFECTIVE [None]
  - DRUG INTERACTION [None]
  - INCREASED APPETITE [None]
  - THYROID FUNCTION TEST ABNORMAL [None]
  - WEIGHT INCREASED [None]
